FAERS Safety Report 9260649 (Version 2)
Quarter: 2013Q2

REPORT INFORMATION
  Report Type: Spontaneous
  Country: US (occurrence: US)
  Receive Date: 20130429
  Receipt Date: 20130517
  Transmission Date: 20140414
  Serious: No
  Sender: FDA-Public Use
  Company Number: US-PFIZER INC-2013131091

PATIENT
  Age: 81 Year
  Sex: Female

DRUGS (18)
  1. NEURONTIN [Suspect]
     Dosage: UNK
  2. MORPHINE SULFATE [Suspect]
     Dosage: UNK
  3. PROMETHAZINE HCL [Suspect]
     Dosage: UNK
  4. ATIVAN [Suspect]
     Dosage: 0.5 MG, DAILY
     Route: 048
     Dates: start: 20120105
  5. ALENDRONIC ACID [Suspect]
     Dosage: UNK
  6. MACROBID [Suspect]
     Dosage: UNK
  7. FENTANYL [Suspect]
     Dosage: UNK
  8. KEFLEX [Suspect]
     Dosage: UNK
  9. KERLONE [Suspect]
     Dosage: UNK
  10. LEVAQUIN [Suspect]
     Dosage: UNK
  11. FOSAMAX [Suspect]
     Dosage: UNK
  12. AMITRIPTYLINE [Suspect]
     Dosage: UNK
  13. MIACALCIN [Suspect]
     Dosage: UNK
  14. ROFECOXIB [Suspect]
     Dosage: UNK
  15. URSODIOL [Suspect]
     Dosage: 250 MG, 1X/DAY
  16. DILAUDID [Suspect]
     Dosage: 2 MG, UNK
  17. PHENERGAN [Suspect]
     Dosage: UNK
  18. TOPROL XL [Suspect]
     Dosage: UNK

REACTIONS (1)
  - Drug hypersensitivity [Unknown]
